FAERS Safety Report 5564879-2 (Version None)
Quarter: 2007Q4

REPORT INFORMATION
  Report Type: 
  Country: None (occurrence: None)
  Receive Date: 20071218
  Receipt Date: 20071212
  Transmission Date: 20080405
  Serious: Yes (Other)
  Sender: FDA-Public Use
  Company Number: PHEH2007US15515

PATIENT
  Sex: Male

DRUGS (3)
  1. NEORAL [Suspect]
     Indication: HEART TRANSPLANT
     Dosage: 225 MG/DAY
     Route: 048
     Dates: start: 19970101
  2. MYFORTIC [Suspect]
     Indication: HEART TRANSPLANT
     Dosage: 180 MG, BID
     Route: 048
     Dates: start: 20070901
  3. CELLCEPT [Concomitant]
     Indication: HEART TRANSPLANT
     Dosage: UNK, UNK
     Dates: start: 19970101, end: 20070901

REACTIONS (1)
  - CARDIOMEGALY [None]
